FAERS Safety Report 4698339-8 (Version None)
Quarter: 2005Q2

REPORT INFORMATION
  Report Type: 
  Country: None (occurrence: None)
  Receive Date: 20050621
  Receipt Date: 20050607
  Transmission Date: 20051028
  Serious: Yes (Death)
  Sender: FDA-Public Use
  Company Number: BRO-008724

PATIENT
  Age: 67 Year
  Sex: Male

DRUGS (1)
  1. IOPAMIDOL-370 [Suspect]
     Indication: VENTRICULOGRAM
     Dosage: 20 ML INTRAVENTRIC.
     Route: 042
     Dates: start: 20050530, end: 20050530

REACTIONS (7)
  - ARRHYTHMIA [None]
  - BLOOD PRESSURE INCREASED [None]
  - BRONCHOSPASM [None]
  - CEREBRAL INFARCTION [None]
  - HEPATIC ENZYME INCREASED [None]
  - LOSS OF CONSCIOUSNESS [None]
  - MUSCLE SPASMS [None]
